FAERS Safety Report 10446763 (Version 1)
Quarter: 2014Q3

REPORT INFORMATION
  Report Type: Spontaneous
  Country: US (occurrence: None)
  Receive Date: 20140910
  Receipt Date: 20140910
  Transmission Date: 20150326
  Serious: No
  Sender: FDA-Public Use
  Company Number: None

PATIENT

DRUGS (2)
  1. VARIZIG [Suspect]
     Active Substance: HUMAN VARICELLA-ZOSTER IMMUNE GLOBULIN
     Dosage: VIAL
  2. STERILE DILUENT [Suspect]
     Active Substance: WATER
     Dosage: VIAL

REACTIONS (1)
  - Intercepted medication error [None]
